FAERS Safety Report 8958745 (Version 4)
Quarter: 2013Q3

REPORT INFORMATION
  Report Type: Report from Study
  Country: JP (occurrence: JP)
  Receive Date: 20121212
  Receipt Date: 20130925
  Transmission Date: 20140515
  Serious: Yes (Other)
  Sender: FDA-Public Use
  Company Number: JP-VERTEX PHARMACEUTICAL INC.-2012-024879

PATIENT
  Age: 60 Year
  Sex: Male

DRUGS (13)
  1. VX-950 (TELAPREVIR) [Suspect]
     Indication: CHRONIC HEPATITIS C
     Dosage: 2250 MG, QD
     Route: 048
     Dates: start: 20120910, end: 20120912
  2. VX-950 (TELAPREVIR) [Suspect]
     Dosage: 2000 MG, QD
     Route: 048
     Dates: start: 20120913, end: 20120930
  3. VX-950 (TELAPREVIR) [Suspect]
     Dosage: 1750 MG, QD
     Route: 048
     Dates: start: 20121001, end: 20121104
  4. VX-950 (TELAPREVIR) [Suspect]
     Dosage: 1500 MG, QD
     Route: 048
     Dates: start: 20121105, end: 20121203
  5. RIBAVIRIN [Suspect]
     Indication: CHRONIC HEPATITIS C
     Dosage: 600 MG, QD
     Route: 048
     Dates: start: 20120910, end: 20120919
  6. RIBAVIRIN [Suspect]
     Dosage: 400 MG, QD
     Route: 048
     Dates: start: 20120920, end: 20121016
  7. RIBAVIRIN [Suspect]
     Dosage: 200 MG, QD
     Route: 048
     Dates: start: 20121017, end: 20121202
  8. RIBAVIRIN [Suspect]
     Dosage: 400 MG, QD
     Route: 048
     Dates: start: 20121203, end: 20130127
  9. RIBAVIRIN [Suspect]
     Dosage: 800 MG, QD
     Route: 048
     Dates: start: 20130128, end: 20130225
  10. PEGINTERFERON ALFA-2B [Suspect]
     Indication: CHRONIC HEPATITIS C
     Dosage: 1.5 ?G/KG, QW
     Route: 058
     Dates: start: 20120910, end: 20130225
  11. ALLELOCK [Concomitant]
     Dosage: 10 MG, QD
     Route: 048
     Dates: start: 20120910
  12. NEXIUM [Concomitant]
     Dosage: 20 MG, QD
     Route: 048
     Dates: start: 20120910, end: 20130225
  13. ALOSITOL [Concomitant]
     Dosage: 200 MG, QD
     Route: 048
     Dates: start: 20120910

REACTIONS (2)
  - White blood cell count decreased [Recovered/Resolved]
  - Anaemia [Recovered/Resolved]
